FAERS Safety Report 5389062-5 (Version None)
Quarter: 2007Q3

REPORT INFORMATION
  Report Type: 
  Country: None (occurrence: None)
  Receive Date: 20070717
  Receipt Date: 20070710
  Transmission Date: 20080115
  Serious: Yes (Other)
  Sender: FDA-Public Use
  Company Number: GB-PFIZER INC-2006123335

PATIENT
  Sex: Female
  Weight: 2.46 kg

DRUGS (3)
  1. METHYLPREDNISOLONE SODIUM SUCCINATE [Suspect]
     Indication: BACTERIAL INFECTION
     Route: 064
  2. AZATHIOPRINE [Suspect]
     Indication: CYSTIC FIBROSIS
     Route: 064
  3. CYCLOSPORINE [Suspect]
     Indication: CYSTIC FIBROSIS
     Route: 064

REACTIONS (3)
  - DRUG EXPOSURE DURING PREGNANCY [None]
  - PREMATURE BABY [None]
  - SMALL FOR DATES BABY [None]
